FAERS Safety Report 4510670-5 (Version None)
Quarter: 2004Q4

REPORT INFORMATION
  Report Type: 
  Country: None (occurrence: None)
  Receive Date: 20041123
  Receipt Date: 20041109
  Transmission Date: 20050328
  Serious: Yes (Hospitalization)
  Sender: FDA-Public Use
  Company Number: CIO04023847

PATIENT
  Age: 4 Year
  Sex: Male
  Weight: 19.5 kg

DRUGS (1)
  1. NYQUIL CHILDREN'S COUGH/COLD RELIEF, CHERRY FLAVOR (SEE IMAGE) [Suspect]
     Dosage: 60 ML, 1 ONLY FOR 1 DAY, ORAL
     Route: 048
     Dates: start: 20041105, end: 20041105

REACTIONS (2)
  - OVERDOSE [None]
  - SOMNOLENCE [None]
